FAERS Safety Report 7632390-0 (Version None)
Quarter: 2011Q3

REPORT INFORMATION
  Report Type: 
  Country: None (occurrence: None)
  Receive Date: 20110725
  Receipt Date: 20100819
  Transmission Date: 20111222
  Serious: Yes (Other)
  Sender: FDA-Public Use
  Company Number: US-BRISTOL-MYERS SQUIBB COMPANY-15247273

PATIENT
  Age: 76 Year
  Sex: Female

DRUGS (14)
  1. OXYGEN [Concomitant]
     Dosage: DOSAGE:AT NIGHT
  2. NORVASC [Concomitant]
  3. VITAMIN B-12 [Concomitant]
  4. KEFLEX [Concomitant]
  5. VITAMIN TAB [Concomitant]
  6. COUMADIN [Suspect]
     Dates: start: 20090301
  7. SYNTHROID [Concomitant]
  8. MECLIZINE [Concomitant]
  9. DICYCLOMINE [Concomitant]
  10. NEXIUM [Concomitant]
  11. LORAZEPAM [Concomitant]
  12. EPIPEN [Concomitant]
  13. HYDROCHLOROTHIAZIDE [Concomitant]
  14. POTASSIUM [Concomitant]

REACTIONS (2)
  - SKIN DISCOLOURATION [None]
  - PROTHROMBIN TIME ABNORMAL [None]
